FAERS Safety Report 4510020-4 (Version None)
Quarter: 2004Q4

REPORT INFORMATION
  Report Type: 
  Country: None (occurrence: None)
  Receive Date: 20041119
  Receipt Date: 20041108
  Transmission Date: 20050328
  Serious: Yes (Disabling)
  Sender: FDA-Public Use
  Company Number: 8008070

PATIENT
  Age: 19 Year
  Sex: Female
  Weight: 63 kg

DRUGS (3)
  1. KEPPRA [Suspect]
     Indication: EPILEPSY
     Dosage: 1250 MG/D PO
     Route: 048
     Dates: start: 20030801
  2. FRISIUM [Suspect]
     Indication: EPILEPSY
     Dosage: 10 MG /D PO
     Route: 048
     Dates: start: 20040701
  3. FEXOFENADINE [Concomitant]

REACTIONS (1)
  - DIABETES MELLITUS INSULIN-DEPENDENT [None]
